FAERS Safety Report 5526163-2 (Version None)
Quarter: 2007Q4

REPORT INFORMATION
  Report Type: 
  Country: None (occurrence: None)
  Receive Date: 20071120
  Receipt Date: 20071112
  Transmission Date: 20080405
  Serious: Yes (Death)
  Sender: FDA-Public Use
  Company Number: 220001J07AUS

PATIENT
  Age: 5 Year
  Sex: Female

DRUGS (2)
  1. SAIZEN [Suspect]
     Indication: BLOOD GROWTH HORMONE DECREASED
     Dosage: 1 IN 1 DAYS, SUBCUTANEOUS
     Route: 058
  2. VALPROATE SODIUM [Concomitant]

REACTIONS (3)
  - COMA [None]
  - HEPATIC FAILURE [None]
  - MITOCHONDRIAL CYTOPATHY [None]
